FAERS Safety Report 4369500-7 (Version None)
Quarter: 2004Q2

REPORT INFORMATION
  Report Type: 
  Country: None (occurrence: None)
  Receive Date: 20040603
  Receipt Date: 20040527
  Transmission Date: 20050107
  Serious: Yes (Hospitalization)
  Sender: FDA-Public Use
  Company Number: 200411661EU

PATIENT
  Age: 97 Year
  Sex: Female

DRUGS (13)
  1. LASIX [Suspect]
     Route: 048
     Dates: end: 20040430
  2. ZAROXOLYN [Suspect]
     Route: 048
     Dates: end: 20040430
  3. ENATEC [Suspect]
     Route: 048
     Dates: end: 20040430
  4. CIPROXIN [Suspect]
     Indication: INFECTION
     Route: 048
     Dates: end: 20040430
  5. FOLVITE [Concomitant]
  6. DILATREND [Concomitant]
     Dosage: DOSE: 12.5 X 1.5
     Route: 048
  7. BECOTAL [Concomitant]
     Route: 048
  8. SERESTA [Concomitant]
     Route: 048
  9. ALLOPURINOL [Concomitant]
     Route: 048
  10. PERENTEROL [Concomitant]
     Route: 048
  11. NITRODERM [Concomitant]
     Route: 048
  12. CLINDAMYCIN HCL [Concomitant]
     Route: 048
  13. PRIMPERAN INJ [Concomitant]
     Route: 048

REACTIONS (3)
  - BLOOD CREATININE INCREASED [None]
  - BLOOD UREA INCREASED [None]
  - CARDIOMEGALY [None]
